FAERS Safety Report 19802640 (Version 1)
Quarter: 2021Q3

REPORT INFORMATION
  Report Type: Spontaneous
  Country: CA (occurrence: CA)
  Receive Date: 20210908
  Receipt Date: 20210908
  Transmission Date: 20211014
  Serious: Yes (Other)
  Sender: FDA-Public Use
  Company Number: CA-TEVA-2021-CA-1950213

PATIENT
  Age: 15 Year
  Sex: Male

DRUGS (15)
  1. SERTRALINE HYDROCHLORIDE. [Suspect]
     Active Substance: SERTRALINE HYDROCHLORIDE
     Indication: INTELLECTUAL DISABILITY
     Route: 065
  2. QUETIAPINE FUMARATE. [Suspect]
     Active Substance: QUETIAPINE FUMARATE
     Indication: INTELLECTUAL DISABILITY
     Dosage: 500 MILLIGRAM DAILY;
     Route: 048
  3. SERTRALINE HYDROCHLORIDE. [Suspect]
     Active Substance: SERTRALINE HYDROCHLORIDE
     Indication: BEHAVIOUR DISORDER
     Dosage: 100 MILLIGRAM DAILY;
     Route: 065
  4. SERTRALINE HYDROCHLORIDE. [Suspect]
     Active Substance: SERTRALINE HYDROCHLORIDE
     Indication: AUTISM SPECTRUM DISORDER
     Dosage: 100 MILLIGRAM DAILY;
     Route: 065
  5. SERTRALINE HYDROCHLORIDE. [Suspect]
     Active Substance: SERTRALINE HYDROCHLORIDE
     Dosage: 100 MILLIGRAM DAILY;
     Route: 065
  6. ZIPRASIDONE. [Concomitant]
     Active Substance: ZIPRASIDONE
     Indication: AUTISM SPECTRUM DISORDER
     Dosage: 80 MILLIGRAM DAILY;
     Route: 065
  7. OLANZAPINE. [Suspect]
     Active Substance: OLANZAPINE
     Indication: INTELLECTUAL DISABILITY
     Dosage: 20 MILLIGRAM DAILY;
     Route: 065
  8. OLANZAPINE. [Suspect]
     Active Substance: OLANZAPINE
     Indication: BEHAVIOUR DISORDER
     Route: 065
  9. CLONIDINE. [Suspect]
     Active Substance: CLONIDINE
     Indication: INTELLECTUAL DISABILITY
     Route: 065
  10. CLONIDINE. [Suspect]
     Active Substance: CLONIDINE
     Indication: BEHAVIOUR DISORDER
     Route: 065
  11. LAMOTRIGINE. [Suspect]
     Active Substance: LAMOTRIGINE
     Indication: BEHAVIOUR DISORDER
     Dosage: 50 MILLIGRAM DAILY;
     Route: 065
  12. QUETIAPINE FUMARATE. [Suspect]
     Active Substance: QUETIAPINE FUMARATE
     Indication: AUTISM SPECTRUM DISORDER
     Route: 048
  13. QUETIAPINE FUMARATE. [Suspect]
     Active Substance: QUETIAPINE FUMARATE
     Indication: BEHAVIOUR DISORDER
     Dosage: 50 MILLIGRAM DAILY;
     Route: 048
  14. ZIPRASIDONE. [Concomitant]
     Active Substance: ZIPRASIDONE
     Indication: INTELLECTUAL DISABILITY
     Dosage: 80 MILLIGRAM DAILY;
     Route: 065
  15. CLONIDINE. [Suspect]
     Active Substance: CLONIDINE
     Indication: AUTISM SPECTRUM DISORDER
     Dosage: .2 MILLIGRAM DAILY;
     Route: 065

REACTIONS (7)
  - Blood prolactin increased [Recovered/Resolved]
  - Obesity [Recovered/Resolved]
  - Overweight [Recovered/Resolved]
  - Product use issue [Recovered/Resolved]
  - Off label use [Recovered/Resolved]
  - Product prescribing issue [Recovered/Resolved]
  - Aggression [Recovered/Resolved]
